FAERS Safety Report 23091658 (Version 1)
Quarter: 2023Q4

REPORT INFORMATION
  Report Type: Spontaneous
  Country: CZ (occurrence: CZ)
  Receive Date: 20231020
  Receipt Date: 20231020
  Transmission Date: 20240110
  Serious: Yes (Other)
  Sender: FDA-Public Use
  Company Number: CZ-BIOVITRUM-2023-CZ-015077

PATIENT

DRUGS (1)
  1. PEGCETACOPLAN [Suspect]
     Active Substance: PEGCETACOPLAN
     Indication: Product used for unknown indication
     Dosage: UNKNOWN
     Dates: start: 202305

REACTIONS (4)
  - Thrombocytopenia [Recovering/Resolving]
  - Influenza like illness [Recovered/Resolved]
  - Blood test abnormal [Recovered/Resolved]
  - Breakthrough haemolysis [Recovered/Resolved]
